FAERS Safety Report 24606682 (Version 1)
Quarter: 2024Q4

REPORT INFORMATION
  Report Type: Spontaneous
  Country: AU (occurrence: AU)
  Receive Date: 20241112
  Receipt Date: 20241112
  Transmission Date: 20250115
  Serious: Yes (Death, Hospitalization, Other)
  Sender: MERCK
  Company Number: AU-Medison-000582

PATIENT
  Sex: Male

DRUGS (16)
  1. PEMBROLIZUMAB [Suspect]
     Active Substance: PEMBROLIZUMAB
     Indication: Malignant melanoma
     Dosage: 2 MILLIGRAM
     Route: 042
     Dates: start: 20231214, end: 20231214
  2. TEBENTAFUSP [Suspect]
     Active Substance: TEBENTAFUSP
     Indication: Malignant melanoma
     Dosage: 20 MICROGRAM
     Route: 042
     Dates: start: 20231110, end: 20231110
  3. AMOXICILLIN\CLAVULANATE POTASSIUM [Concomitant]
     Active Substance: AMOXICILLIN\CLAVULANATE POTASSIUM
  4. ATORVASTATIN [Concomitant]
     Active Substance: ATORVASTATIN
  5. BETAMETHASONE VALERATE [Concomitant]
     Active Substance: BETAMETHASONE VALERATE
  6. CHOLECALCIFEROL [Concomitant]
     Active Substance: CHOLECALCIFEROL
  7. ESOMEPRAZOLE [Concomitant]
     Active Substance: ESOMEPRAZOLE
  8. FEXOFENADINE HYDROCHLORIDE [Concomitant]
     Active Substance: FEXOFENADINE HYDROCHLORIDE
  9. HALOPERIDOL [Concomitant]
     Active Substance: HALOPERIDOL
  10. HYDROCORTISONE [Concomitant]
     Active Substance: HYDROCORTISONE
  11. MORPHINE [Concomitant]
     Active Substance: MORPHINE
  12. ONDANSETRON [Concomitant]
     Active Substance: ONDANSETRON
  13. PANCREATIN [Concomitant]
     Active Substance: PANCRELIPASE
  14. ACETAMINOPHEN [Concomitant]
     Active Substance: ACETAMINOPHEN
  15. PREGABALIN [Concomitant]
     Active Substance: PREGABALIN
  16. TOCOPHEROL [Concomitant]
     Active Substance: TOCOPHEROL

REACTIONS (3)
  - Cardiac arrest [Fatal]
  - Diarrhoea [Not Recovered/Not Resolved]
  - Vomiting [Unknown]

NARRATIVE: CASE EVENT DATE: 20231224
